FAERS Safety Report 8034663-9 (Version None)
Quarter: 2012Q1

REPORT INFORMATION
  Report Type: 
  Country: None (occurrence: None)
  Receive Date: 20120110
  Receipt Date: 20111228
  Transmission Date: 20120608
  Serious: Yes (Hospitalization)
  Sender: FDA-Public Use
  Company Number: KP-AMGEN-KORSP2011069971

PATIENT
  Age: 44 Year
  Sex: Female

DRUGS (5)
  1. MUCOSTA [Concomitant]
     Dosage: 200 MG, UNK
     Route: 048
     Dates: start: 20110127
  2. CINACALCET HYDROCHLORIDE [Suspect]
     Indication: HYPERPARATHYROIDISM SECONDARY
     Dosage: UNK
     Route: 048
  3. RECORMON                           /00928303/ [Concomitant]
     Dosage: 4000 IU, UNK
     Route: 040
     Dates: start: 20110413
  4. MESULID [Concomitant]
     Dosage: UNK
     Route: 048
     Dates: start: 20110127
  5. KALIMATE [Concomitant]
     Dosage: 15 G, UNK
     Dates: start: 20100823

REACTIONS (1)
  - MUSCULAR WEAKNESS [None]
